FAERS Safety Report 11074187 (Version 1)
Quarter: 2015Q2

REPORT INFORMATION
  Report Type: Spontaneous
  Country: US (occurrence: None)
  Receive Date: 20150428
  Receipt Date: 20150428
  Transmission Date: 20150821
  Serious: Yes (Life-Threatening)
  Sender: FDA-Public Use
  Company Number: None

PATIENT
  Age: 59 Year
  Sex: Male
  Weight: 86 kg

DRUGS (2)
  1. BACLOFEN. [Suspect]
     Active Substance: BACLOFEN
     Indication: ALCOHOL POISONING
     Dosage: 1 HS PRN SLEEP
     Route: 048
     Dates: start: 20150327, end: 20150416
  2. BACLOFEN. [Suspect]
     Active Substance: BACLOFEN
     Indication: HEPATIC CIRRHOSIS
     Dosage: 1 HS PRN SLEEP
     Route: 048
     Dates: start: 20150327, end: 20150416

REACTIONS (5)
  - Condition aggravated [None]
  - Haemodialysis [None]
  - Blood creatinine increased [None]
  - Mental status changes [None]
  - Neurotoxicity [None]

NARRATIVE: CASE EVENT DATE: 20150416
